FAERS Safety Report 5465288-7 (Version None)
Quarter: 2007Q3

REPORT INFORMATION
  Report Type: 
  Country: None (occurrence: None)
  Receive Date: 20070924
  Receipt Date: 20070918
  Transmission Date: 20080115
  Serious: Yes (Life-Threatening, Hospitalization, Disabling, Other)
  Sender: FDA-Public Use
  Company Number: PHHO2006KR18226

PATIENT
  Age: 60 Year
  Sex: Male
  Weight: 79 kg

DRUGS (5)
  1. ZOLEDRONIC ACID [Suspect]
     Indication: METASTASES TO BONE
     Dosage: 4MG EVERY 4WEEKS
     Route: 042
     Dates: start: 20060905, end: 20061002
  2. CALCIUM [Concomitant]
  3. VITAMIN D [Concomitant]
  4. TRIPTORELIN ACETATE [Concomitant]
  5. CYPROTERONE ACETATE [Concomitant]

REACTIONS (26)
  - ATRIAL FLUTTER [None]
  - BURNING SENSATION [None]
  - CONDITION AGGRAVATED [None]
  - DENTAL TREATMENT [None]
  - DISORDER OF ORBIT [None]
  - DYSPNOEA [None]
  - EAR DISORDER [None]
  - ERYTHEMA [None]
  - EYE PAIN [None]
  - FACE OEDEMA [None]
  - HEADACHE [None]
  - INTERVERTEBRAL DISC PROTRUSION [None]
  - LIPOMATOSIS [None]
  - MASS [None]
  - METASTASES TO BONE [None]
  - METASTASES TO NERVOUS SYSTEM [None]
  - METASTASES TO SPINE [None]
  - MUSCULOSKELETAL PAIN [None]
  - ORAL INTAKE REDUCED [None]
  - ORBITAL OEDEMA [None]
  - OSTEONECROSIS [None]
  - PAIN [None]
  - PAIN IN JAW [None]
  - PROSTATE CANCER [None]
  - SENSORY DISTURBANCE [None]
  - SINUSITIS [None]
